FAERS Safety Report 17757776 (Version 9)
Quarter: 2020Q4

REPORT INFORMATION
  Report Type: Report from Study
  Country: CA (occurrence: CA)
  Receive Date: 20200507
  Receipt Date: 20201222
  Transmission Date: 20210113
  Serious: Yes (Hospitalization, Disabling, Congenital Anomaly, Other)
  Sender: FDA-Public Use
  Company Number: NVSC2020CA122648

PATIENT
  Age: 32 Year
  Sex: Female
  Weight: 116.1 kg

DRUGS (12)
  1. ADVIL [Concomitant]
     Active Substance: IBUPROFEN
     Indication: ABDOMINAL PAIN
     Dosage: UNK
     Route: 065
     Dates: start: 20200420, end: 20200423
  2. MAGNESIUM [Concomitant]
     Active Substance: MAGNESIUM
     Indication: VITAMIN SUPPLEMENTATION
     Dosage: UNK
     Route: 065
     Dates: start: 20180418, end: 20200420
  3. ADVIL [Concomitant]
     Active Substance: IBUPROFEN
     Indication: MIGRAINE
  4. TYLENOL [Concomitant]
     Active Substance: ACETAMINOPHEN
     Indication: APPENDICITIS
     Dosage: UNK
     Route: 065
     Dates: start: 20200420
  5. TYLENOL [Concomitant]
     Active Substance: ACETAMINOPHEN
     Indication: MIGRAINE
  6. PLACEBO [Suspect]
     Active Substance: UNSPECIFIED INGREDIENT
     Indication: MULTIPLE SCLEROSIS
     Dosage: 1 DF, Q4H
     Route: 058
     Dates: start: 20191002
  7. VITAMIN D [Concomitant]
     Active Substance: VITAMIN D NOS
     Indication: VITAMIN SUPPLEMENTATION
     Dosage: UNK
     Route: 065
     Dates: start: 20160901, end: 20200420
  8. VITAMIN B12 [Concomitant]
     Active Substance: CYANOCOBALAMIN
     Indication: VITAMIN SUPPLEMENTATION
     Dosage: UNK
     Route: 065
     Dates: start: 20171110, end: 20200420
  9. ECHINACEA [Concomitant]
     Active Substance: ECHINACEA, UNSPECIFIED
     Indication: LOWER RESPIRATORY TRACT INFECTION
     Dosage: UNK
     Route: 065
     Dates: start: 20191015, end: 20200420
  10. MARVELON [Concomitant]
     Active Substance: DESOGESTREL\ETHINYL ESTRADIOL
     Indication: CONTRACEPTION
     Dosage: UNK
     Route: 065
     Dates: start: 20020101, end: 20200427
  11. OFATUMUMAB [Suspect]
     Active Substance: OFATUMUMAB
     Indication: MULTIPLE SCLEROSIS
     Dosage: 20 MG, Q4W
     Route: 058
     Dates: start: 20190925, end: 20200411
  12. AMOXICILLIN/CLAVULANIC ACID [Concomitant]
     Active Substance: AMOXICILLIN\CLAVULANIC ACID
     Indication: THROMBOSIS
     Dosage: UNK
     Route: 065
     Dates: start: 20200501, end: 20200520

REACTIONS (3)
  - Appendicitis perforated [Not Recovered/Not Resolved]
  - Abscess [Recovered/Resolved]
  - Mesenteric vein thrombosis [Not Recovered/Not Resolved]

NARRATIVE: CASE EVENT DATE: 20200428
